FAERS Safety Report 4804701-2 (Version None)
Quarter: 2005Q4

REPORT INFORMATION
  Report Type: 
  Country: None (occurrence: None)
  Receive Date: 20051014
  Receipt Date: 20050930
  Transmission Date: 20060501
  Serious: Yes (Death, Hospitalization, Other)
  Sender: FDA-Public Use
  Company Number: 2002-04737

PATIENT
  Age: 27 Year
  Sex: Male
  Weight: 50 kg

DRUGS (8)
  1. VIREAD [Suspect]
     Indication: HIV INFECTION
     Dosage: 300 MG, ONCE A DAY
  2. DIDANOSINE [Suspect]
     Indication: HIV INFECTION
     Dosage: 400 MG, ONCE A DAY
  3. LOPINAVIR W/RITONAVIR (KALETRA) [Concomitant]
  4. EPOETIN ALFA (EPOETIN ALFA) [Concomitant]
  5. AZITHROMYCIN [Concomitant]
  6. RIFABUTIN (RIFABUTIN) [Concomitant]
  7. FLUCONAZOLE [Concomitant]
  8. SULFAMETHOXAZOLE W/TRIMETHOPRIM (BACTRIM / 00086101/) [Concomitant]

REACTIONS (25)
  - ACUTE RESPIRATORY DISTRESS SYNDROME [None]
  - ASCITES [None]
  - ASPARTATE AMINOTRANSFERASE INCREASED [None]
  - BLOOD ALBUMIN DECREASED [None]
  - BLOOD BILIRUBIN INCREASED [None]
  - BLOOD SODIUM DECREASED [None]
  - DRUG INTERACTION [None]
  - DRUG TOXICITY [None]
  - GENERALISED OEDEMA [None]
  - HUNGER [None]
  - HYPERLACTACIDAEMIA [None]
  - HYPOTENSION [None]
  - HYPOTHERMIA [None]
  - HYPOXIA [None]
  - LACTIC ACIDOSIS [None]
  - MULTI-ORGAN FAILURE [None]
  - NAUSEA [None]
  - PANCREATIC PSEUDOCYST [None]
  - PANCREATITIS ACUTE [None]
  - PANCREATITIS NECROTISING [None]
  - PLEURAL EFFUSION [None]
  - PROTEIN TOTAL INCREASED [None]
  - TACHYCARDIA [None]
  - VOMITING [None]
  - WEIGHT DECREASED [None]
